FAERS Safety Report 6647062-9 (Version None)
Quarter: 2010Q1

REPORT INFORMATION
  Report Type: 
  Country: None (occurrence: None)
  Receive Date: 20100323
  Receipt Date: 20100311
  Transmission Date: 20100710
  Serious: Yes (Hospitalization, Other)
  Sender: FDA-Public Use
  Company Number: US-PFIZER INC-2007035433

PATIENT
  Sex: Female
  Weight: 55.329 kg

DRUGS (7)
  1. CADUET [Suspect]
     Indication: BLOOD CHOLESTEROL INCREASED
     Dosage: 5MG/20MG 1X/DAY
     Dates: start: 20070116, end: 20070119
  2. CADUET [Suspect]
     Indication: HYPERTENSION
     Dosage: UNK
  3. VIBRAMYCIN [Suspect]
  4. PENICILLIN G [Suspect]
     Dosage: UNK
  5. PREMARIN [Suspect]
  6. ACETYLSALICYLIC ACID [Concomitant]
     Dosage: UNKMG, UNK
     Route: 048
  7. ALPRAZOLAM [Concomitant]
     Dosage: ONCE OR TWICE A DAY AS NEEDED

REACTIONS (37)
  - ACTIVITIES OF DAILY LIVING IMPAIRED [None]
  - AGGRESSION [None]
  - ANXIETY [None]
  - ASTHENIA [None]
  - CARPAL TUNNEL SYNDROME [None]
  - CHEST PAIN [None]
  - CONFUSIONAL STATE [None]
  - CONSTIPATION [None]
  - DEPRESSION [None]
  - DISORIENTATION [None]
  - DIZZINESS [None]
  - DYSPNOEA [None]
  - FATIGUE [None]
  - FIBROMYALGIA [None]
  - GAIT DISTURBANCE [None]
  - HEADACHE [None]
  - HYPERSENSITIVITY [None]
  - HYPOAESTHESIA [None]
  - HYPOPHAGIA [None]
  - IMPAIRED WORK ABILITY [None]
  - INSOMNIA [None]
  - JOINT CREPITATION [None]
  - MALAISE [None]
  - MOVEMENT DISORDER [None]
  - MUSCLE ATROPHY [None]
  - MUSCLE DISORDER [None]
  - MUSCLE SPASMS [None]
  - MUSCULAR WEAKNESS [None]
  - NAUSEA [None]
  - PAIN [None]
  - PERIPHERAL COLDNESS [None]
  - POLLAKIURIA [None]
  - SKIN PAPILLOMA [None]
  - THROMBOSIS [None]
  - URTICARIA [None]
  - VASODILATATION [None]
  - VOMITING [None]
